FAERS Safety Report 5324835-6 (Version None)
Quarter: 2007Q2

REPORT INFORMATION
  Report Type: 
  Country: None (occurrence: None)
  Receive Date: 20070515
  Receipt Date: 20070507
  Transmission Date: 20071010
  Serious: Yes (Death, Hospitalization, Other)
  Sender: FDA-Public Use
  Company Number: IT-ELI_LILLY_AND_COMPANY-IT200512002407

PATIENT
  Age: 52 Year
  Sex: Male

DRUGS (8)
  1. CISPLATIN [Concomitant]
     Dosage: 75 MG/M2, UNK
     Route: 042
  2. ALIMTA [Suspect]
     Indication: PLEURAL MESOTHELIOMA MALIGNANT ADVANCED
     Dosage: 500 MG, OTHER
     Route: 042
     Dates: start: 20051118, end: 20051204
  3. FOLIC ACID [Concomitant]
     Indication: PROPHYLAXIS
     Dosage: UNK, UNK
     Route: 048
     Dates: start: 20051111, end: 20051204
  4. VITAMIN B-12 [Concomitant]
     Dosage: UNK, UNK
     Route: 030
     Dates: start: 20051111, end: 20051204
  5. TILDIEM [Concomitant]
     Indication: HYPERTENSION
     Dosage: 200 MG, UNK
     Dates: end: 20051204
  6. LUVION [Concomitant]
     Indication: HYPERTENSION
     Dates: end: 20051204
  7. FUROSEMIDE [Concomitant]
     Indication: HYPERTENSION
     Dates: end: 20051204
  8. UNIPRIL [Concomitant]
     Indication: HYPERTENSION
     Dates: end: 20051204

REACTIONS (4)
  - CARDIAC ARREST [None]
  - DEHYDRATION [None]
  - INTESTINAL OBSTRUCTION [None]
  - MUCOSAL INFLAMMATION [None]
